FAERS Safety Report 6449456-3 (Version None)
Quarter: 2009Q4

REPORT INFORMATION
  Report Type: 
  Country: None (occurrence: None)
  Receive Date: 20091120
  Receipt Date: 20091111
  Transmission Date: 20100525
  Serious: Yes (Hospitalization)
  Sender: FDA-Public Use
  Company Number: PHHY2009JP49549

PATIENT
  Age: 35 Year
  Sex: Female

DRUGS (4)
  1. TEGRETOL [Suspect]
     Dosage: 1000 MG
     Route: 048
  2. TEGRETOL [Interacting]
     Dosage: 800 MG
     Route: 048
  3. PHENOBARBITAL [Interacting]
     Dosage: 150 MG
     Route: 048
  4. GABAPENTIN [Interacting]
     Dosage: 1200 MG
     Route: 048

REACTIONS (4)
  - DRUG INTERACTION [None]
  - DRUG LEVEL INCREASED [None]
  - EPILEPSY [None]
  - SOMNOLENCE [None]
